FAERS Safety Report 7384043-4 (Version None)
Quarter: 2011Q1

REPORT INFORMATION
  Report Type: 
  Country: None (occurrence: None)
  Receive Date: 20110330
  Receipt Date: 20110325
  Transmission Date: 20110831
  Serious: Yes (Life-Threatening, Other)
  Sender: FDA-Public Use
  Company Number: GXKR2011DE01008

PATIENT
  Sex: Female
  Weight: 82 kg

DRUGS (1)
  1. ATENOLOL 1A PHARMA [Suspect]
     Indication: HYPERTENSION
     Dosage: 50 MG, ONCE/SINGLE
     Route: 048
     Dates: start: 20110115

REACTIONS (5)
  - ERYTHEMA [None]
  - ARRHYTHMIA [None]
  - BLOOD PRESSURE INCREASED [None]
  - TACHYCARDIA [None]
  - ANXIETY [None]
